FAERS Safety Report 6299788-7 (Version None)
Quarter: 2009Q3

REPORT INFORMATION
  Report Type: 
  Country: None (occurrence: None)
  Receive Date: 20090806
  Receipt Date: 20090803
  Transmission Date: 20100115
  Serious: Yes (Hospitalization)
  Sender: FDA-Public Use
  Company Number: FR-BRISTOL-MYERS SQUIBB COMPANY-14726988

PATIENT
  Age: 26 Year
  Sex: Male

DRUGS (6)
  1. FERVEX [Suspect]
     Indication: TONSILLITIS
     Route: 048
     Dates: start: 20081225, end: 20081227
  2. FERVEX [Suspect]
     Indication: OROPHARYNGEAL PAIN
     Route: 048
     Dates: start: 20081225, end: 20081227
  3. FERVEX [Suspect]
     Indication: INFLUENZA
     Route: 048
     Dates: start: 20081225, end: 20081227
  4. PARACETAMOL [Suspect]
     Indication: TONSILLITIS
     Dates: start: 20081227, end: 20081228
  5. IBUPROFEN [Suspect]
     Indication: TONSILLITIS
     Dates: start: 20081227, end: 20081228
  6. AMOXICILLIN [Suspect]
     Indication: TONSILLITIS
     Dates: start: 20081227, end: 20081228

REACTIONS (5)
  - ABDOMINAL PAIN UPPER [None]
  - AGRANULOCYTOSIS [None]
  - DIARRHOEA [None]
  - HAEMATEMESIS [None]
  - VOMITING [None]
